FAERS Safety Report 8158308-2 (Version None)
Quarter: 2012Q1

REPORT INFORMATION
  Report Type: 
  Country: None (occurrence: None)
  Receive Date: 20120217
  Receipt Date: 20120202
  Transmission Date: 20120608
  Serious: Yes (Death)
  Sender: FDA-Public Use
  Company Number: 2012020066

PATIENT
  Age: 26 Year
  Sex: Male

DRUGS (5)
  1. ACETAMINOPHEN WITH HYDROCODONE (ACETAMINOPHEN, HYDROCODONE) [Suspect]
     Route: 048
  2. OXYCODONE HCL [Suspect]
     Route: 048
  3. CARISOPRODOL [Suspect]
     Route: 048
  4. ACETAMINOPHEN [Suspect]
     Route: 048
  5. ALPRAZOLAM [Suspect]
     Route: 048

REACTIONS (3)
  - RESPIRATORY ARREST [None]
  - CARDIAC ARREST [None]
  - COMPLETED SUICIDE [None]
